FAERS Safety Report 6508553-4 (Version None)
Quarter: 2009Q4

REPORT INFORMATION
  Report Type: 
  Country: None (occurrence: None)
  Receive Date: 20091221
  Receipt Date: 20091210
  Transmission Date: 20100525
  Serious: Yes (Death, Hospitalization, Other)
  Sender: FDA-Public Use
  Company Number: US-PFIZER INC-2009308627

PATIENT
  Age: 36 Year
  Sex: Female

DRUGS (2)
  1. SUNITINIB MALATE [Suspect]
     Indication: ADRENAL CARCINOMA
     Dosage: 37.5 MG, 1X/DAY, DAYS 1-28
     Route: 048
     Dates: start: 20091030, end: 20091121
  2. BEVACIZUMAB [Suspect]
     Indication: ADRENAL CARCINOMA
     Dosage: 5 MG/KG, OVER 30-90 MINUTES, DAY 1, 15 AND 29
     Route: 042
     Dates: start: 20091030, end: 20091113

REACTIONS (5)
  - DEATH [None]
  - HYPOTENSION [None]
  - NEUTROPENIA [None]
  - PERICARDIAL EFFUSION [None]
  - PLATELET COUNT DECREASED [None]
